FAERS Safety Report 6228262-9 (Version None)
Quarter: 2009Q2

REPORT INFORMATION
  Report Type: 
  Country: None (occurrence: None)
  Receive Date: 20090612
  Receipt Date: 20090603
  Transmission Date: 20091009
  Serious: Yes (Other)
  Sender: FDA-Public Use
  Company Number: PHHY2009FI21703

PATIENT
  Age: 10 Year
  Sex: Female

DRUGS (1)
  1. ZADITEN [Suspect]
     Indication: HYPERSENSITIVITY

REACTIONS (1)
  - SYNCOPE [None]
